FAERS Safety Report 8615970-5 (Version None)
Quarter: 2012Q3

REPORT INFORMATION
  Report Type: 
  Country: None (occurrence: None)
  Receive Date: 20120823
  Receipt Date: 20120817
  Transmission Date: 20120928
  Serious: Yes (Life-Threatening)
  Sender: FDA-Public Use
  Company Number: FR-PFIZER INC-2012201688

PATIENT
  Age: 86 Year
  Sex: Female

DRUGS (18)
  1. SOLU-MEDROL [Suspect]
     Indication: PREMEDICATION
     Dosage: 80 MG, CYCLIC
     Route: 042
     Dates: start: 20120703, end: 20120703
  2. FASTURTEC [Suspect]
     Indication: PREMEDICATION
     Dosage: 10.5 MG, CYCLIC
     Route: 042
     Dates: start: 20120703, end: 20120703
  3. ZOFRAN [Suspect]
     Indication: PREMEDICATION
     Dosage: 8 MG, CYCLIC
     Route: 042
     Dates: start: 20120703, end: 20120703
  4. CETIRIZINE [Concomitant]
     Dosage: 10 MG, 3X/DAY
  5. ALLOPURINOL [Concomitant]
     Dosage: 300 MG, 1X/DAY
  6. ESOMEPRAZOLE [Concomitant]
     Dosage: 40 MG, 1X/DAY
  7. LANSOYL [Concomitant]
     Dosage: 2 DF A DAY
  8. TRANSIPEG [Concomitant]
     Dosage: 1 DF A DAY
  9. POLARAMINE [Suspect]
     Indication: PREMEDICATION
     Dosage: 5 MG, CYCLIC
     Route: 042
     Dates: start: 20120703, end: 20120703
  10. FRAGMIN [Concomitant]
     Dosage: 5000 IU
  11. FLUTICASONE PROPIONATE/SALMETEROL [Concomitant]
     Dosage: 2 DF A DAY
  12. GAVISCON [Concomitant]
  13. MABTHERA [Suspect]
     Indication: NON-HODGKIN'S LYMPHOMA
     Dosage: 300 MG, CYCLIC
     Route: 042
     Dates: start: 20120703, end: 20120703
  14. ACETAMINOPHEN [Suspect]
     Indication: PREMEDICATION
     Dosage: 1 G, CYCLIC
     Route: 042
     Dates: start: 20120703, end: 20120703
  15. ACETAMINOPHEN [Concomitant]
     Dosage: 500 MG, 6X/DAY
  16. VENTOLIN [Concomitant]
     Dosage: 100 UG, 2X/DAY
  17. DOMPERIDONE [Concomitant]
     Dosage: 10 MG, 3X/DAY
  18. LORAZEPAM [Concomitant]
     Dosage: 10 MG, 1X/DAY

REACTIONS (4)
  - HYPERSENSITIVITY [None]
  - RESPIRATORY DISTRESS [None]
  - ABDOMINAL PAIN [None]
  - LIVEDO RETICULARIS [None]
